FAERS Safety Report 10248996 (Version 1)
Quarter: 2014Q2

REPORT INFORMATION
  Report Type: Spontaneous
  Country: US (occurrence: None)
  Receive Date: 20140619
  Receipt Date: 20140619
  Transmission Date: 20141212
  Serious: Yes (Hospitalization, Other)
  Sender: FDA-Public Use
  Company Number: None

PATIENT
  Age: 30 Year
  Sex: Male
  Weight: 111.13 kg

DRUGS (2)
  1. IBUPROFEN [Suspect]
     Indication: PAIN
     Dosage: 14 YRS ON AND OFF?AS NEEDED
  2. IBUPROFEN [Suspect]
     Indication: CHEST PAIN
     Dosage: 14 YRS ON AND OFF?AS NEEDED

REACTIONS (6)
  - Gastrooesophageal reflux disease [None]
  - Hiatus hernia [None]
  - Chronic gastritis [None]
  - Gastrointestinal vascular malformation [None]
  - Duodenal polyp [None]
  - Renal cell carcinoma [None]
